FAERS Safety Report 9286383 (Version 2)
Quarter: 2013Q3

REPORT INFORMATION
  Report Type: Spontaneous
  Country: US (occurrence: US)
  Receive Date: 20130513
  Receipt Date: 20130904
  Transmission Date: 20140515
  Serious: Yes (Life-Threatening, Hospitalization, Other)
  Sender: FDA-Public Use
  Company Number: US-BAYER-2013-057537

PATIENT
  Age: 25 Year
  Sex: Female

DRUGS (16)
  1. YAZ [Suspect]
     Dosage: UNK
     Dates: start: 2010, end: 2011
  2. YASMIN [Suspect]
     Dosage: UNK
     Dates: start: 2010, end: 2011
  3. OCELLA [Suspect]
     Dosage: UNK
     Dates: start: 2010, end: 2011
  4. GLYBURIDE [Concomitant]
  5. GLUCOPHAGE [Concomitant]
  6. LORTAB [Concomitant]
  7. EFFEXOR [Concomitant]
  8. OMEPRAZOLE [Concomitant]
  9. AUGMENTIN [Concomitant]
  10. FAMOTIDINE [Concomitant]
  11. PRILOSEC [Concomitant]
  12. PRENATAL VITAMINS [Concomitant]
  13. PHENTERMINE HYDROCHLORIDE [Concomitant]
     Dosage: 37.5 MG, UNK
  14. CELEXA [Concomitant]
  15. ZYRTEC [Concomitant]
  16. CYMBALTA [Concomitant]

REACTIONS (11)
  - Deep vein thrombosis [None]
  - Thrombosis [None]
  - Pain [None]
  - Injury [None]
  - Emotional distress [None]
  - General physical health deterioration [None]
  - Abdominal pain [None]
  - Anxiety [None]
  - Pain [None]
  - Transverse sinus thrombosis [Recovering/Resolving]
  - Intracranial venous sinus thrombosis [Recovering/Resolving]
